FAERS Safety Report 9425100 (Version 2)
Quarter: 2013Q3

REPORT INFORMATION
  Report Type: Report from Study
  Country: BR (occurrence: BR)
  Receive Date: 20130729
  Receipt Date: 20130816
  Transmission Date: 20140515
  Serious: Yes (Hospitalization, Other)
  Sender: FDA-Public Use
  Company Number: BR-ACTELION-A-CH2013-86332

PATIENT
  Age: 61 Year
  Sex: Female
  Weight: 71.4 kg

DRUGS (9)
  1. BOSENTAN [Suspect]
     Indication: PULMONARY ARTERIAL HYPERTENSION
     Dosage: 125 MG, BID
     Route: 048
     Dates: start: 20111103, end: 20130722
  2. BOSENTAN [Suspect]
     Dosage: 62.5 MG, BID
     Route: 048
     Dates: start: 20111005, end: 20111102
  3. BOSENTAN [Suspect]
     Dosage: UNK
     Route: 048
     Dates: start: 20130814
  4. SILDENAFIL [Concomitant]
     Dosage: 20 MG, TID
     Route: 048
     Dates: start: 20110514
  5. LEVOTHYROXINE [Concomitant]
     Dosage: UNK
     Dates: start: 1981
  6. PREDNISONE [Concomitant]
     Dosage: UNK
     Dates: start: 1981
  7. MAREVAN [Concomitant]
     Dosage: UNK
     Dates: start: 20110513
  8. OMEPRAZOLE [Concomitant]
     Dosage: UNK
     Dates: start: 2009
  9. SIMVASTATIN [Concomitant]
     Dosage: UNK
     Dates: start: 1995

REACTIONS (11)
  - Electrocardiogram QT prolonged [Recovered/Resolved]
  - Bradycardia [Recovered/Resolved]
  - General physical health deterioration [Recovering/Resolving]
  - Dyspnoea [Recovering/Resolving]
  - Chest pain [Recovering/Resolving]
  - Cough [Recovering/Resolving]
  - Fatigue [Recovering/Resolving]
  - Decreased appetite [Recovering/Resolving]
  - Vomiting [Recovering/Resolving]
  - Diarrhoea [Recovering/Resolving]
  - Pyrexia [Recovering/Resolving]
